FAERS Safety Report 5486503-X (Version None)
Quarter: 2007Q3

REPORT INFORMATION
  Report Type: 
  Country: None (occurrence: None)
  Receive Date: 20070919
  Receipt Date: 20070625
  Transmission Date: 20080115
  Serious: No
  Sender: FDA-Public Use
  Company Number: 2007RL000288

PATIENT
  Age: 59 Year
  Sex: Male
  Weight: 87.0906 kg

DRUGS (5)
  1. OMACOR [Suspect]
     Indication: BLOOD TRIGLYCERIDES INCREASED
     Dosage: 2 GM;WD;PO; 4 GM;QD;PO
     Route: 048
     Dates: start: 20070401, end: 20070501
  2. OMACOR [Suspect]
     Indication: BLOOD TRIGLYCERIDES INCREASED
     Dosage: 2 GM;WD;PO; 4 GM;QD;PO
     Route: 048
     Dates: start: 20070501
  3. GLUCOPHAGE [Concomitant]
  4. CYMBALTA [Concomitant]
  5. DEMADEX [Concomitant]

REACTIONS (5)
  - CHEST DISCOMFORT [None]
  - DYSPNOEA [None]
  - ERUCTATION [None]
  - NAUSEA [None]
  - ORAL ADMINISTRATION COMPLICATION [None]
